FAERS Safety Report 7324856-8 (Version None)
Quarter: 2011Q1

REPORT INFORMATION
  Report Type: 
  Country: None (occurrence: None)
  Receive Date: 20110301
  Receipt Date: 20110222
  Transmission Date: 20110831
  Serious: No
  Sender: FDA-Public Use
  Company Number: NL-ABBOTT-10P-114-0676276-00

PATIENT
  Sex: Female
  Weight: 68 kg

DRUGS (6)
  1. PARACETAMOL [Concomitant]
     Indication: PRODUCT USED FOR UNKNOWN INDICATION
     Route: 048
  2. LUCRIN 11.25 MG [Suspect]
     Indication: ENDOMETRIOSIS
     Route: 058
     Dates: start: 20100709, end: 20101201
  3. IBUPROFEN [Concomitant]
     Indication: RHEUMATOID ARTHRITIS
  4. TRAMADOL [Concomitant]
     Indication: RHEUMATOID ARTHRITIS
  5. IBUPROFEN [Concomitant]
     Indication: PAIN
     Route: 048
  6. TRAMADOL [Concomitant]
     Indication: ANALGESIC THERAPY
     Route: 048

REACTIONS (10)
  - PAPULE [None]
  - ABDOMINAL DISTENSION [None]
  - OEDEMA [None]
  - POOR QUALITY SLEEP [None]
  - ARTHROPATHY [None]
  - MENORRHAGIA [None]
  - HOT FLUSH [None]
  - FATIGUE [None]
  - NAUSEA [None]
  - WEIGHT FLUCTUATION [None]
